FAERS Safety Report 20219450 (Version 2)
Quarter: 2022Q1

REPORT INFORMATION
  Report Type: Spontaneous
  Country: CM (occurrence: CM)
  Receive Date: 20211222
  Receipt Date: 20220124
  Transmission Date: 20220423
  Serious: No
  Sender: FDA-Public Use
  Company Number: CM-LUPIN PHARMACEUTICALS INC.-2021-25089

PATIENT
  Age: 38 Year
  Sex: Female

DRUGS (8)
  1. QUININE [Suspect]
     Active Substance: QUININE
     Indication: Malaria
     Dosage: 250 MILLIGRAM, TID
     Route: 048
     Dates: start: 201903
  2. QUININE [Suspect]
     Active Substance: QUININE
     Dosage: 500 MILLIGRAM, TID (INFUSION)
     Route: 050
     Dates: start: 201903
  3. PYRIMETHAMINE\SULFADOXINE [Suspect]
     Active Substance: PYRIMETHAMINE\SULFADOXINE
     Indication: Malaria prophylaxis
     Dosage: UNK, ONE DOSE
     Route: 065
  4. DEXTROSE [Suspect]
     Active Substance: DEXTROSE
     Indication: Product used for unknown indication
     Dosage: UNK
     Route: 065
     Dates: start: 201903
  5. VITAMIN B COMPLEX [Suspect]
     Active Substance: CYANOCOBALAMIN\DEXPANTHENOL\NIACINAMIDE\PYRIDOXINE HYDROCHLORIDE\RIBOFLAVIN 5^-PHOSPHATE SODIUM\THIA
     Indication: Anaemia
     Dosage: UNK
     Route: 065
  6. IRON [Suspect]
     Active Substance: IRON
     Indication: Anaemia
     Dosage: UNK
     Route: 065
  7. ARTESUNATE [Suspect]
     Active Substance: ARTESUNATE
     Indication: Malaria
     Dosage: 140 MILLIGRAM; AT 8, 24, 48 AND 72H
     Route: 030
     Dates: start: 201903
  8. ARTESUNATE [Suspect]
     Active Substance: ARTESUNATE
     Indication: Malaria
     Dosage: UNK
     Route: 048
     Dates: start: 201903

REACTIONS (1)
  - Maternal exposure during pregnancy [Unknown]
